FAERS Safety Report 13130550 (Version 2)
Quarter: 2017Q1

REPORT INFORMATION
  Report Type: Spontaneous
  Country: IT (occurrence: IT)
  Receive Date: 20170119
  Receipt Date: 20170123
  Transmission Date: 20170428
  Serious: No
  Sender: FDA-Public Use
  Company Number: IT-PFIZER INC-2017020894

PATIENT
  Age: 31 Year
  Sex: Female

DRUGS (2)
  1. BASSADO [Suspect]
     Active Substance: DOXYCYCLINE HYCLATE
     Dosage: 1 DF, DAILY
     Route: 048
  2. BASSADO [Suspect]
     Active Substance: DOXYCYCLINE HYCLATE
     Indication: MYCOPLASMA INFECTION
     Dosage: 100 MG, DAILY
     Route: 048

REACTIONS (9)
  - Nausea [Not Recovered/Not Resolved]
  - Dizziness [Not Recovered/Not Resolved]
  - Feeling hot [Not Recovered/Not Resolved]
  - Tachycardia [Not Recovered/Not Resolved]
  - Pruritus generalised [Not Recovered/Not Resolved]
  - Agitation [Not Recovered/Not Resolved]
  - Myalgia [Not Recovered/Not Resolved]
  - Paraesthesia [Not Recovered/Not Resolved]
  - Headache [Not Recovered/Not Resolved]

NARRATIVE: CASE EVENT DATE: 20161001
